FAERS Safety Report 17958665 (Version 1)
Quarter: 2020Q2

REPORT INFORMATION
  Report Type: Spontaneous
  Country: US (occurrence: US)
  Receive Date: 20200629
  Receipt Date: 20200629
  Transmission Date: 20200714
  Serious: Yes (Death, Other)
  Sender: FDA-Public Use
  Company Number: US-PFIZER INC-2020-07794

PATIENT
  Age: 68 Year
  Sex: Female
  Weight: 77.1 kg

DRUGS (4)
  1. BRAFTOVI [Suspect]
     Active Substance: ENCORAFENIB
     Indication: RECTAL CANCER
     Dosage: 300 MG, 1X/DAY
     Route: 048
     Dates: start: 20191023, end: 20200301
  2. CYMBALTA [Concomitant]
     Active Substance: DULOXETINE HYDROCHLORIDE
     Indication: PAIN
     Dosage: UNK
     Dates: start: 20200225, end: 20200315
  3. DURAGESIC [Concomitant]
     Active Substance: FENTANYL
     Indication: PAIN
     Dosage: UNK
     Dates: start: 20200216, end: 20200315
  4. MEKTOVI [Suspect]
     Active Substance: BINIMETINIB
     Indication: RECTAL CANCER
     Dosage: 45 MG, 2X/DAY
     Route: 048
     Dates: start: 20191023, end: 20200301

REACTIONS (4)
  - COVID-19 [Fatal]
  - Neoplasm progression [Fatal]
  - Off label use [Unknown]
  - Product use in unapproved indication [Unknown]

NARRATIVE: CASE EVENT DATE: 20191023
